FAERS Safety Report 15989750 (Version 1)
Quarter: 2019Q1

REPORT INFORMATION
  Report Type: Spontaneous
  Country: BR (occurrence: BR)
  Receive Date: 20190221
  Receipt Date: 20190221
  Transmission Date: 20190418
  Serious: Yes (Hospitalization)
  Sender: FDA-Public Use
  Company Number: PHHY2019BR039684

PATIENT
  Age: 91 Year
  Sex: Male
  Weight: 38 kg

DRUGS (3)
  1. EXELON PATCH [Suspect]
     Active Substance: RIVASTIGMINE
     Indication: DEMENTIA ALZHEIMER^S TYPE
     Dosage: 4.6 MG, QD (4.6 MG, QD (PATCH 5 (CM2), 09 MG RIVASTIGMINE BASE))
     Route: 062
  2. EXELON PATCH [Suspect]
     Active Substance: RIVASTIGMINE
     Dosage: 9.5 MG, QD (9.5 MG QD (PATCH 10 (CM2), 18 MG RIVASTIGMINE BASE))
     Route: 062
  3. EXELON PATCH [Suspect]
     Active Substance: RIVASTIGMINE
     Dosage: 13.3 MG, QD (13.3 MG, QD ( PATCH 15 (CM2), 27 MG RIVASTIGMINE BASE))
     Route: 062

REACTIONS (6)
  - Device leakage [Recovering/Resolving]
  - Urinary tract infection [Recovering/Resolving]
  - Eating disorder [Recovering/Resolving]
  - Malnutrition [Recovering/Resolving]
  - Pneumonia aspiration [Recovering/Resolving]
  - Swelling [Recovering/Resolving]

NARRATIVE: CASE EVENT DATE: 20190201
